FAERS Safety Report 24448014 (Version 2)
Quarter: 2024Q4

REPORT INFORMATION
  Report Type: Report from Study
  Country: US (occurrence: US)
  Receive Date: 20241016
  Receipt Date: 20241227
  Transmission Date: 20250115
  Serious: Yes (Other)
  Sender: NOVARTIS
  Company Number: US-002147023-NVSC2024US153411

PATIENT
  Age: 42 Year
  Sex: Male

DRUGS (1)
  1. KESIMPTA [Suspect]
     Active Substance: OFATUMUMAB
     Indication: Relapsing multiple sclerosis
     Dosage: 20 MG, QMO
     Route: 058
     Dates: start: 20240610

REACTIONS (9)
  - Critical illness [Recovered/Resolved with Sequelae]
  - Asthenia [Unknown]
  - Clumsiness [Unknown]
  - Allergy to arthropod sting [Unknown]
  - Paraesthesia [Unknown]
  - Hypoaesthesia [Unknown]
  - Headache [Unknown]
  - Body temperature increased [Unknown]
  - Infection [Unknown]

NARRATIVE: CASE EVENT DATE: 20240725
